FAERS Safety Report 10684857 (Version 1)
Quarter: 2014Q4

REPORT INFORMATION
  Report Type: Spontaneous
  Country: US (occurrence: None)
  Receive Date: 20141230
  Receipt Date: 20141230
  Transmission Date: 20150529
  Serious: Yes (Life-Threatening, Hospitalization, Disabling, Other)
  Sender: FDA-Public Use
  Company Number: None

PATIENT
  Age: 66 Year
  Sex: Female
  Weight: 89.36 kg

DRUGS (1)
  1. ENOXAPARIN [Suspect]
     Active Substance: ENOXAPARIN
     Indication: ATRIAL FIBRILLATION
     Dosage: 80 MG/0.8ML ?TWICE DAILY?GIVEN INTO/UNDER THE SKIN
     Dates: start: 20141107, end: 20141205

REACTIONS (1)
  - Haematoma [None]

NARRATIVE: CASE EVENT DATE: 20141206
